FAERS Safety Report 17556591 (Version 2)
Quarter: 2020Q2

REPORT INFORMATION
  Report Type: Spontaneous
  Country: GB (occurrence: GB)
  Receive Date: 20200318
  Receipt Date: 20200417
  Transmission Date: 20200713
  Serious: Yes (Other)
  Sender: FDA-Public Use
  Company Number: GB-BECTON DICKINSON-2020BDN00084

PATIENT
  Age: 47 Year
  Sex: Male

DRUGS (1)
  1. CHLORHEXIDINE-ALCOHOL [Suspect]
     Active Substance: ALCOHOL\CHLORHEXIDINE GLUCONATE
     Indication: ANTIBIOTIC PROPHYLAXIS
     Route: 061

REACTIONS (1)
  - Anaphylactic reaction [Recovering/Resolving]
